FAERS Safety Report 8594093-8 (Version None)
Quarter: 2012Q3

REPORT INFORMATION
  Report Type: 
  Country: None (occurrence: None)
  Receive Date: 20120814
  Receipt Date: 20120807
  Transmission Date: 20120928
  Serious: Yes (Hospitalization)
  Sender: FDA-Public Use
  Company Number: IT-BAXTER-2012BAX013856

PATIENT
  Sex: Female

DRUGS (4)
  1. IFOSFAMIDE [Suspect]
     Indication: EWING'S SARCOMA
     Route: 042
     Dates: start: 20120731, end: 20120801
  2. CISPLATIN [Concomitant]
     Route: 065
     Dates: start: 20120530
  3. VINCRISTINE [Concomitant]
     Dosage: 3 MCG/M2
     Route: 065
  4. DOXORUBICIN HYDROCHLORIDE [Concomitant]
     Route: 065

REACTIONS (4)
  - OEDEMA [None]
  - TOXICITY TO VARIOUS AGENTS [None]
  - TREMOR [None]
  - SOMNOLENCE [None]
